FAERS Safety Report 14927794 (Version 7)
Quarter: 2022Q4

REPORT INFORMATION
  Report Type: Report from Study
  Country: DE (occurrence: DE)
  Receive Date: 20180523
  Receipt Date: 20221104
  Transmission Date: 20230113
  Serious: Yes (Death, Hospitalization, Other)
  Sender: FDA-Public Use
  Company Number: DE-002147023-PHHY2018DE021592

PATIENT
  Sex: Female
  Weight: 79.2 kg

DRUGS (8)
  1. ANASTROZOLE [Suspect]
     Active Substance: ANASTROZOLE
     Indication: Breast cancer metastatic
     Dosage: 1 MG, QD
     Route: 048
     Dates: start: 20180105, end: 20181113
  2. ANASTROZOLE [Suspect]
     Active Substance: ANASTROZOLE
     Dosage: 1 MILLIGRAM, QD,1 MG, QD (1-0-0)
     Route: 048
     Dates: start: 20181117, end: 20181120
  3. KISQALI [Suspect]
     Active Substance: RIBOCICLIB
     Indication: Breast cancer metastatic
     Dosage: 600 MG, QD
     Route: 048
     Dates: start: 20180105, end: 20180124
  4. KISQALI [Suspect]
     Active Substance: RIBOCICLIB
     Dosage: 3 DF, QD,121,7D PAUSE
     Route: 048
     Dates: start: 20180105, end: 20180320
  5. KISQALI [Suspect]
     Active Substance: RIBOCICLIB
     Dosage: (SCHEMA 21 DAYS INTAKE, THAN 7 DAYS PAUSE)
     Route: 048
     Dates: start: 20180105, end: 20180320
  6. KISQALI [Suspect]
     Active Substance: RIBOCICLIB
     Dosage: 600 MG, QD
     Route: 048
     Dates: start: 20180201
  7. KISQALI [Suspect]
     Active Substance: RIBOCICLIB
     Dosage: (SCHEMA 21 DAYS INTAKE, THAN 7 DAYS PAUSE)
     Route: 048
     Dates: start: 20180321, end: 20181113
  8. KISQALI [Suspect]
     Active Substance: RIBOCICLIB
     Dosage: (SCHEMA 21 DAYS INTAKE, THAN 7 DAYS PAUSE)
     Route: 048
     Dates: start: 20181117, end: 20181120

REACTIONS (8)
  - Death [Fatal]
  - Chronic kidney disease [Unknown]
  - Concomitant disease progression [Unknown]
  - General physical health deterioration [Recovered/Resolved]
  - Pneumothorax [Recovered/Resolved]
  - Ascites [Recovering/Resolving]
  - Dyspnoea [Recovering/Resolving]
  - Cough [Recovered/Resolved]

NARRATIVE: CASE EVENT DATE: 20180130
